FAERS Safety Report 6965020-1 (Version None)
Quarter: 2010Q3

REPORT INFORMATION
  Report Type: 
  Country: None (occurrence: None)
  Receive Date: 20100903
  Receipt Date: 20100826
  Transmission Date: 20110219
  Serious: Yes (Other)
  Sender: FDA-Public Use
  Company Number: US-SANOFI-AVENTIS-2010SA051902

PATIENT
  Sex: Female

DRUGS (4)
  1. LANTUS [Suspect]
     Indication: INSULIN-REQUIRING TYPE 2 DIABETES MELLITUS
     Dosage: DOSE:120 UNIT(S)
     Route: 058
     Dates: start: 20080101
  2. SOLOSTAR [Suspect]
     Indication: INSULIN-REQUIRING TYPE 2 DIABETES MELLITUS
     Dates: start: 20080101
  3. IRON [Concomitant]
     Indication: BLOOD DISORDER
  4. ARANESP [Concomitant]
     Indication: BLOOD DISORDER

REACTIONS (2)
  - BLOOD GLUCOSE INCREASED [None]
  - CARDIAC DISORDER [None]
